FAERS Safety Report 21090863 (Version 2)
Quarter: 2023Q1

REPORT INFORMATION
  Report Type: Spontaneous
  Country: CN (occurrence: CN)
  Receive Date: 20220716
  Receipt Date: 20230223
  Transmission Date: 20230418
  Serious: Yes (Other)
  Sender: FDA-Public Use
  Company Number: CN-CHIESI-2022CHF03508

PATIENT

DRUGS (2)
  1. CUROSURF [Suspect]
     Active Substance: PORACTANT ALFA
     Indication: Neonatal respiratory distress syndrome
     Dosage: 100 MILLIGRAM/KILOGRAM
     Route: 007
  2. CUROSURF [Suspect]
     Active Substance: PORACTANT ALFA
     Dosage: 100 MILLIGRAM/KILOGRAM
     Route: 007

REACTIONS (2)
  - Neonatal pneumonia [Unknown]
  - Off label use [Unknown]
